FAERS Safety Report 23489310 (Version 1)
Quarter: 2024Q1

REPORT INFORMATION
  Report Type: Spontaneous
  Country: US (occurrence: None)
  Receive Date: 20240206
  Receipt Date: 20240206
  Transmission Date: 20240410
  Serious: No
  Sender: FDA-Public Use
  Company Number: US-ROCHE-3325319

PATIENT
  Sex: Female

DRUGS (1)
  1. XOLAIR [Suspect]
     Active Substance: OMALIZUMAB
     Indication: Urticaria
     Dosage: 03/APR/2023: MOST RECENT DOSE ADMINISTERED.
     Route: 058

REACTIONS (8)
  - Joint swelling [Unknown]
  - Arthralgia [Unknown]
  - Rash [Unknown]
  - Serum sickness [Unknown]
  - Erythema [Unknown]
  - Muscle swelling [Unknown]
  - Infection [Unknown]
  - Periorbital swelling [Unknown]
